FAERS Safety Report 4557605-7 (Version None)
Quarter: 2005Q1

REPORT INFORMATION
  Report Type: 
  Country: None (occurrence: None)
  Receive Date: 20050118
  Receipt Date: 20050113
  Transmission Date: 20050727
  Serious: Yes (Other)
  Sender: FDA-Public Use
  Company Number: 2005-01-0875

PATIENT
  Sex: Male

DRUGS (1)
  1. INTRON A [Suspect]
     Dosage: SEE IMAGE

REACTIONS (2)
  - METASTASES TO LIVER [None]
  - RENAL CANCER METASTATIC [None]
